FAERS Safety Report 12883079 (Version 1)
Quarter: 2016Q4

REPORT INFORMATION
  Report Type: Spontaneous
  Country: US (occurrence: US)
  Receive Date: 20161025
  Receipt Date: 20161025
  Transmission Date: 20170207
  Serious: Yes (Other)
  Sender: FDA-Public Use
  Company Number: ALCN2016US007189

PATIENT
  Age: 32 Year
  Sex: Female

DRUGS (2)
  1. PREDNISOLONE ACETATE. [Suspect]
     Active Substance: PREDNISOLONE ACETATE
     Indication: VISUAL ACUITY REDUCED
     Dosage: 1 DF, TID
     Route: 047
  2. PREDNISOLONE ACETATE. [Suspect]
     Active Substance: PREDNISOLONE ACETATE
     Indication: EYE INJURY
     Dosage: 1 DF, QID
     Route: 047

REACTIONS (4)
  - Condition aggravated [Recovered/Resolved]
  - Visual acuity reduced [Recovered/Resolved]
  - Episcleritis [Recovered/Resolved]
  - Conjunctival vascular disorder [Recovered/Resolved]
